FAERS Safety Report 21917676 (Version 3)
Quarter: 2025Q4

REPORT INFORMATION
  Report Type: Report from Study
  Country: US (occurrence: US)
  Receive Date: 20230127
  Receipt Date: 20251125
  Transmission Date: 20260118
  Serious: Yes (Other)
  Sender: DECIPHERA PHARMACEUTICALS
  Company Number: US-DECIPHERA PHARMACEUTICALS LLC-2023US000016

PATIENT
  Age: 48 Year
  Sex: Male

DRUGS (2)
  1. QINLOCK [Suspect]
     Active Substance: RIPRETINIB
     Indication: Gastrointestinal stromal tumour
     Dosage: 150 MILLIGRAM, QD
     Dates: start: 20220420
  2. QINLOCK [Suspect]
     Active Substance: RIPRETINIB
     Dosage: 150 MILLIGRAM, BID
     Dates: start: 20220420, end: 2023

REACTIONS (13)
  - Pneumonia [Unknown]
  - Hepatic neoplasm [Unknown]
  - Pelvic neoplasm [Unknown]
  - Influenza [Unknown]
  - Pain [Unknown]
  - Ear pain [Unknown]
  - Otorrhoea [Unknown]
  - Pain in extremity [Unknown]
  - Cough [Unknown]
  - Muscle spasms [Unknown]
  - Dry skin [Unknown]
  - Product dose omission issue [Unknown]
  - Extra dose administered [Unknown]

NARRATIVE: CASE EVENT DATE: 20230424
